FAERS Safety Report 7428888-0 (Version None)
Quarter: 2011Q2

REPORT INFORMATION
  Report Type: 
  Country: None (occurrence: None)
  Receive Date: 20110421
  Receipt Date: 20110415
  Transmission Date: 20111010
  Serious: Yes (Hospitalization)
  Sender: FDA-Public Use
  Company Number: US-B.I. PHARMACEUTICALS,INC./RIDGEFIELD-2011-BP-08909BP

PATIENT
  Sex: Female

DRUGS (15)
  1. HUMALIN [Concomitant]
  2. LOPRESSOR [Concomitant]
     Dosage: 25 MG
  3. ZOFRAM [Concomitant]
  4. PRADAXA [Suspect]
     Indication: CARDIAC DISORDER
     Dosage: 300 MG
  5. ALBUTEROL [Concomitant]
  6. HYDROCHLOROTHIAZIDE [Concomitant]
  7. LORCET-HD [Concomitant]
  8. PREVACID [Concomitant]
     Dosage: 30 MG
  9. VITAMIN B-12 [Concomitant]
  10. ACETAMINOPHEN [Concomitant]
  11. SYNTHROID [Concomitant]
     Dosage: 100 MCG
  12. DEMADEX [Concomitant]
     Dosage: 20 MG
  13. NORVASC [Concomitant]
     Dosage: 10 MG
  14. PYRIDOXINE HCL [Concomitant]
  15. HUMALIN [Concomitant]

REACTIONS (2)
  - INTESTINAL HAEMORRHAGE [None]
  - HAEMATEMESIS [None]
